FAERS Safety Report 26139827 (Version 1)
Quarter: 2025Q4

REPORT INFORMATION
  Report Type: Spontaneous
  Country: BR (occurrence: BR)
  Receive Date: 20251210
  Receipt Date: 20251210
  Transmission Date: 20260118
  Serious: Yes (Hospitalization, Other)
  Sender: SANOFI AVENTIS
  Company Number: BR-SANOFI-02691546

PATIENT
  Age: 37 Year
  Sex: Female
  Weight: 103 kg

DRUGS (4)
  1. DUPIXENT [Suspect]
     Active Substance: DUPILUMAB
     Dosage: UNK
  2. Deller [Concomitant]
     Dosage: UNK
  3. ARIPIPRAZOLE [Concomitant]
     Active Substance: ARIPIPRAZOLE
     Dosage: UNK
  4. POLARAMINE [Concomitant]
     Active Substance: DEXCHLORPHENIRAMINE MALEATE
     Dosage: 1 DOSE EVERY 6 HOUR

REACTIONS (15)
  - Asthmatic crisis [Unknown]
  - Hospitalisation [Unknown]
  - Hypersensitivity [Unknown]
  - Dyspnoea [Unknown]
  - Cough [Unknown]
  - Blood immunoglobulin E decreased [Unknown]
  - Fatigue [Unknown]
  - Wheezing [Unknown]
  - COVID-19 [Unknown]
  - Glottal incompetence [Unknown]
  - Weight increased [Unknown]
  - Retention cyst [Unknown]
  - Oropharyngeal pain [Unknown]
  - Erythema [Unknown]
  - Pruritus [Unknown]

NARRATIVE: CASE EVENT DATE: 20200101
